FAERS Safety Report 11583275 (Version 1)
Quarter: 2015Q3

REPORT INFORMATION
  Report Type: Spontaneous
  Country: US (occurrence: None)
  Receive Date: 20150930
  Receipt Date: 20150930
  Transmission Date: 20151125
  Serious: No
  Sender: FDA-Public Use
  Company Number: None

PATIENT
  Age: 54 Year
  Sex: Male
  Weight: 70.31 kg

DRUGS (1)
  1. MIRTAZIPINE [Suspect]
     Active Substance: MIRTAZAPINE
     Indication: DEPRESSION

REACTIONS (3)
  - Product substitution issue [None]
  - Product quality issue [None]
  - Malaise [None]

NARRATIVE: CASE EVENT DATE: 20150601
